FAERS Safety Report 5268562-2 (Version None)
Quarter: 2007Q1

REPORT INFORMATION
  Report Type: 
  Country: None (occurrence: None)
  Receive Date: 20070313
  Receipt Date: 20070227
  Transmission Date: 20070707
  Serious: Yes (Hospitalization)
  Sender: FDA-Public Use
  Company Number: T200700270

PATIENT
  Age: 27 Day
  Sex: Male
  Weight: 1.5 kg

DRUGS (2)
  1. TECHNESCAN MAG3 [Suspect]
     Indication: RENAL SCAN
     Dosage: 1.65 MCI, SINGLE, INTRAVENOUS
     Route: 042
     Dates: start: 20070227, end: 20070227
  2. LASIX [Suspect]
     Indication: RENAL SCAN
     Dosage: 4 MG, SINGLE, INTRAVENOUS
     Route: 042
     Dates: start: 20070227, end: 20070227

REACTIONS (7)
  - ACIDOSIS [None]
  - CYANOSIS [None]
  - DYSPNOEA [None]
  - ELECTROCARDIOGRAM ST SEGMENT ELEVATION [None]
  - OXYGEN SATURATION DECREASED [None]
  - SINUS TACHYCARDIA [None]
  - VENTRICULAR EXTRASYSTOLES [None]
